FAERS Safety Report 9347994 (Version 1)
Quarter: 2013Q2

REPORT INFORMATION
  Report Type: Spontaneous
  Country: CN (occurrence: CN)
  Receive Date: 20130614
  Receipt Date: 20130614
  Transmission Date: 20140414
  Serious: Yes (Hospitalization)
  Sender: FDA-Public Use
  Company Number: CN-JNJFOC-20130605381

PATIENT
  Age: 26 Year
  Sex: Male

DRUGS (1)
  1. TYLENOL COLD [Suspect]
     Indication: NASOPHARYNGITIS
     Route: 048
     Dates: start: 20120626, end: 20120626

REACTIONS (4)
  - Rash [Recovered/Resolved]
  - Drug eruption [Unknown]
  - Pruritus [None]
  - Erythema [None]
